FAERS Safety Report 6132230-5 (Version None)
Quarter: 2009Q1

REPORT INFORMATION
  Report Type: 
  Country: None (occurrence: None)
  Receive Date: 20090325
  Receipt Date: 20090313
  Transmission Date: 20090719
  Serious: Yes (Other)
  Sender: FDA-Public Use
  Company Number: US-PFIZER INC-2008099588

PATIENT
  Sex: Female

DRUGS (7)
  1. TIKOSYN [Suspect]
     Indication: ATRIAL FIBRILLATION
     Dosage: 250 UG, 2X/DAY
  2. TOPROL-XL [Concomitant]
     Dosage: UNK
  3. TIAZAC [Concomitant]
     Dosage: UNK
  4. SYNTHROID [Concomitant]
     Dosage: UNK
  5. LASIX [Concomitant]
     Dosage: UNK
  6. OMEPRAZOLE [Concomitant]
     Dosage: UNK
  7. FOSAMAX [Concomitant]
     Dosage: UNK

REACTIONS (5)
  - CYSTITIS [None]
  - FALL [None]
  - FEMUR FRACTURE [None]
  - PAIN [None]
  - SPINAL FRACTURE [None]
